FAERS Safety Report 8380382-9 (Version None)
Quarter: 2012Q2

REPORT INFORMATION
  Report Type: 
  Country: None (occurrence: None)
  Receive Date: 20120523
  Receipt Date: 20120509
  Transmission Date: 20120825
  Serious: Yes (Other)
  Sender: FDA-Public Use
  Company Number: FR-UCBSA-057584

PATIENT
  Age: 11 Year
  Sex: Male
  Weight: 95 kg

DRUGS (2)
  1. METHYLPHENIDATE HCL [Suspect]
     Indication: ATTENTION DEFICIT/HYPERACTIVITY DISORDER
     Dosage: 30 MG
     Route: 048
     Dates: start: 20120101, end: 20120326
  2. METHYLPHENIDATE HCL [Suspect]
     Dosage: 20 MG
     Route: 048
     Dates: start: 20120130, end: 20120101

REACTIONS (4)
  - INSOMNIA [None]
  - WEIGHT INCREASED [None]
  - INCREASED APPETITE [None]
  - OEDEMA [None]
